FAERS Safety Report 4766321-8 (Version None)
Quarter: 2005Q3

REPORT INFORMATION
  Report Type: 
  Country: None (occurrence: None)
  Receive Date: 20050912
  Receipt Date: 20050315
  Transmission Date: 20060218
  Serious: Yes (Other)
  Sender: FDA-Public Use
  Company Number: US-MERCK-0503USA03187

PATIENT
  Age: 50 Year
  Sex: Female
  Weight: 70 kg

DRUGS (5)
  1. VIOXX [Suspect]
     Indication: ARTHRALGIA
     Route: 048
     Dates: start: 20001001, end: 20041001
  2. VIOXX [Suspect]
     Route: 048
     Dates: end: 20041017
  3. MOTRIN [Concomitant]
     Indication: PAIN
     Route: 065
  4. MOTRIN [Concomitant]
     Indication: ARTHRALGIA
     Route: 065
  5. DILANTIN [Concomitant]
     Indication: CONVULSION
     Route: 065

REACTIONS (11)
  - ANGINA PECTORIS [None]
  - ANXIETY DISORDER [None]
  - CEREBROVASCULAR ACCIDENT [None]
  - CHRONIC FATIGUE SYNDROME [None]
  - CONVULSION [None]
  - HEADACHE [None]
  - HERNIA [None]
  - OVERDOSE [None]
  - PAIN IN EXTREMITY [None]
  - SHOULDER PAIN [None]
  - SLEEP APNOEA SYNDROME [None]
